FAERS Safety Report 7245607-1 (Version None)
Quarter: 2011Q1

REPORT INFORMATION
  Report Type: 
  Country: None (occurrence: None)
  Receive Date: 20110126
  Receipt Date: 20110113
  Transmission Date: 20110831
  Serious: Yes (Hospitalization)
  Sender: FDA-Public Use
  Company Number: PHHY2011US04291

PATIENT
  Age: 73 Year
  Sex: Male

DRUGS (4)
  1. ACETAMINOPHEN [Concomitant]
     Dosage: UNK
  2. OMEPRAZOLE [Suspect]
     Indication: PEPTIC ULCER
     Dosage: 20 MG, QD
     Route: 048
  3. LEVOTHYROXINE SODIUM [Concomitant]
     Indication: PEPTIC ULCER
     Dosage: 100 MG, QD
  4. CAFFEINE [Concomitant]
     Dosage: UNK

REACTIONS (11)
  - MALAISE [None]
  - PYREXIA [None]
  - URINARY CASTS [None]
  - TUBULOINTERSTITIAL NEPHRITIS [None]
  - ABDOMINAL PAIN [None]
  - MYALGIA [None]
  - ASTHENIA [None]
  - C-REACTIVE PROTEIN INCREASED [None]
  - HEADACHE [None]
  - CHILLS [None]
  - JOINT SWELLING [None]
